FAERS Safety Report 4866167-6 (Version None)
Quarter: 2005Q4

REPORT INFORMATION
  Report Type: 
  Country: None (occurrence: None)
  Receive Date: 20051221
  Receipt Date: 20051208
  Transmission Date: 20060501
  Serious: Yes (Hospitalization, Disabling, Other)
  Sender: FDA-Public Use
  Company Number: 2005167785

PATIENT
  Age: 36 Year
  Sex: Female
  Weight: 91.6266 kg

DRUGS (2)
  1. DILANTIN KAPSEAL [Suspect]
     Indication: CONVULSION
     Dosage: 500MG A DAY EXCEPT 600MG WED, FRI, SUNDAY, ORAL
     Route: 048
  2. VERSED [Suspect]
     Indication: HEART RATE IRREGULAR
     Dates: start: 19980701, end: 19980701

REACTIONS (11)
  - ASTROCYTOMA [None]
  - CARDIO-RESPIRATORY ARREST [None]
  - CONVULSION [None]
  - DEPRESSED LEVEL OF CONSCIOUSNESS [None]
  - DIFFICULTY IN WALKING [None]
  - DRUG EXPOSURE DURING PREGNANCY [None]
  - MOVEMENT DISORDER [None]
  - NASOPHARYNGITIS [None]
  - NAUSEA [None]
  - NEOPLASM RECURRENCE [None]
  - PREGNANCY [None]
